FAERS Safety Report 23618592 (Version 1)
Quarter: 2024Q1

REPORT INFORMATION
  Report Type: Report from Study
  Country: IE (occurrence: IE)
  Receive Date: 20240311
  Receipt Date: 20240311
  Transmission Date: 20240409
  Serious: Yes (Hospitalization)
  Sender: FDA-Public Use
  Company Number: IE-AstraZeneca-2023A276531

PATIENT
  Age: 100 Day
  Sex: Male

DRUGS (7)
  1. SYNAGIS [Suspect]
     Active Substance: PALIVIZUMAB
     Indication: Heart disease congenital
     Dosage: ONCE IN 4 WEEK
     Route: 030
     Dates: start: 20231030
  2. SYNAGIS [Suspect]
     Active Substance: PALIVIZUMAB
     Dosage: ONCE IN 4 WEEK
     Route: 030
     Dates: start: 20231201
  3. SYNAGIS [Suspect]
     Active Substance: PALIVIZUMAB
     Dosage: ONCE IN 4 WEEK
     Route: 030
     Dates: start: 20231229
  4. SYNAGIS [Suspect]
     Active Substance: PALIVIZUMAB
     Dosage: ONCE IN 4 WEEK
     Route: 030
     Dates: start: 20240124
  5. SYNAGIS [Suspect]
     Active Substance: PALIVIZUMAB
     Dosage: ONCE IN 4 WEEK
     Route: 030
     Dates: start: 20240301
  6. CAPTOPRIL [Concomitant]
     Active Substance: CAPTOPRIL
     Indication: Product used for unknown indication
     Dosage: THRICE DAILY
  7. PROPRANOLOL HYDROCHLORIDE [Concomitant]
     Active Substance: PROPRANOLOL HYDROCHLORIDE
     Indication: Product used for unknown indication
     Route: 050

REACTIONS (6)
  - Bronchiolitis [Not Recovered/Not Resolved]
  - Cough [Not Recovered/Not Resolved]
  - Heart valve incompetence [Not Recovered/Not Resolved]
  - Cardiac disorder [Not Recovered/Not Resolved]
  - Product use issue [Not Recovered/Not Resolved]
  - Inappropriate schedule of product administration [Not Recovered/Not Resolved]

NARRATIVE: CASE EVENT DATE: 20231116
